FAERS Safety Report 13386803 (Version 1)
Quarter: 2017Q1

REPORT INFORMATION
  Report Type: Spontaneous
  Country: GB (occurrence: GB)
  Receive Date: 20170330
  Receipt Date: 20170330
  Transmission Date: 20170429
  Serious: Yes (Life-Threatening, Hospitalization)
  Sender: FDA-Public Use
  Company Number: GB-AUROBINDO-AUR-APL-2017-31375

PATIENT
  Age: 46 Year
  Sex: Male
  Weight: 63.4 kg

DRUGS (4)
  1. VENLAFAXINE PROLONGED RELEASE CAPSULES, HARD 150MG [Suspect]
     Active Substance: VENLAFAXINE HYDROCHLORIDE
     Indication: DEPRESSION
     Dosage: 150 MG, ONCE A DAY
     Route: 048
     Dates: end: 20170223
  2. VENLAFAXINE [Suspect]
     Active Substance: VENLAFAXINE HYDROCHLORIDE
     Indication: DEPRESSION
     Dosage: 37.5 MG, TWO TIMES A DAY
     Route: 048
     Dates: end: 20170222
  3. QUETIAPINE. [Suspect]
     Active Substance: QUETIAPINE
     Indication: DEPRESSION
     Dosage: 300 MG, ONCE A DAY
     Route: 048
     Dates: end: 20170223
  4. NIQUITIN                           /01033301/ [Concomitant]
     Indication: PRODUCT USED FOR UNKNOWN INDICATION
     Dosage: 14 MG, UNK
     Route: 065

REACTIONS (13)
  - Myoclonic epilepsy [Recovering/Resolving]
  - Pain in extremity [Unknown]
  - Incontinence [Unknown]
  - Dyspnoea [Unknown]
  - Condition aggravated [Unknown]
  - Drug withdrawal convulsions [None]
  - Blood sodium decreased [None]
  - Hypothermia [Unknown]
  - Glomerular filtration rate decreased [None]
  - Alcohol use [None]
  - Vomiting [None]
  - Blood creatinine increased [None]
  - Blood potassium decreased [None]

NARRATIVE: CASE EVENT DATE: 20170216
